FAERS Safety Report 17075937 (Version 1)
Quarter: 2019Q4

REPORT INFORMATION
  Report Type: Report from Study
  Country: US (occurrence: US)
  Receive Date: 20191126
  Receipt Date: 20191126
  Transmission Date: 20200122
  Serious: Yes (Hospitalization)
  Sender: FDA-Public Use
  Company Number: US-GILEAD-2019-0439312

PATIENT
  Age: 37 Year
  Sex: Female

DRUGS (14)
  1. SYMDEKO [Suspect]
     Active Substance: IVACAFTOR\TEZACAFTOR
     Indication: CYSTIC FIBROSIS
     Dosage: 1 DOSAGE FORM, BID
     Route: 065
     Dates: start: 20180403
  2. LANTUS [Concomitant]
     Active Substance: INSULIN GLARGINE
  3. AZTREONAM LYSINE [Suspect]
     Active Substance: AZTREONAM LYSINE
     Indication: CYSTIC FIBROSIS
     Dosage: 75 MG, TID FOR 28 DAYS ON AND 28 DAYS OFF
     Route: 055
     Dates: start: 20150423
  4. HYPERSAL [Concomitant]
     Active Substance: SODIUM CHLORIDE
  5. PULMOZYME [Concomitant]
     Active Substance: DORNASE ALFA
  6. ZENPEP [Concomitant]
     Active Substance: PANCRELIPASE AMYLASE\PANCRELIPASE LIPASE\PANCRELIPASE PROTEASE
  7. TRAMADOL HYDROCHLORIDE. [Concomitant]
     Active Substance: TRAMADOL HYDROCHLORIDE
  8. PANTOPRAZOLE [Concomitant]
     Active Substance: PANTOPRAZOLE
  9. IBUPROFEN. [Concomitant]
     Active Substance: IBUPROFEN
  10. LEVAQUIN [Concomitant]
     Active Substance: LEVOFLOXACIN
  11. AZITHROMYCIN ANHYDROUS. [Concomitant]
     Active Substance: AZITHROMYCIN ANHYDROUS
  12. CYCLOBENZAPRINE. [Concomitant]
     Active Substance: CYCLOBENZAPRINE
  13. TOBI [Concomitant]
     Active Substance: TOBRAMYCIN
  14. ULTRASE [PANCRELIPASE] [Concomitant]

REACTIONS (1)
  - Ovarian cyst [Unknown]

NARRATIVE: CASE EVENT DATE: 20191120
